FAERS Safety Report 5428234-8 (Version None)
Quarter: 2007Q3

REPORT INFORMATION
  Report Type: 
  Country: None (occurrence: None)
  Receive Date: 20070828
  Receipt Date: 20070818
  Transmission Date: 20080115
  Serious: Yes (Other)
  Sender: FDA-Public Use
  Company Number: US-PFIZER INC-2007070159

PATIENT
  Sex: Male
  Weight: 68 kg

DRUGS (2)
  1. CHANTIX [Suspect]
     Indication: SMOKING CESSATION THERAPY
  2. ALBUTEROL [Concomitant]
     Indication: ASTHMA
     Dosage: FREQ:AS NEEDED

REACTIONS (5)
  - AGGRESSION [None]
  - AGITATION [None]
  - EMOTIONAL DISORDER [None]
  - IRRITABILITY [None]
  - MOOD ALTERED [None]
